FAERS Safety Report 8490079-2 (Version None)
Quarter: 2012Q3

REPORT INFORMATION
  Report Type: 
  Country: None (occurrence: None)
  Receive Date: 20120705
  Receipt Date: 20120625
  Transmission Date: 20120928
  Serious: Yes (Other)
  Sender: FDA-Public Use
  Company Number: US-JNJFOC-20100805159

PATIENT
  Sex: Female

DRUGS (4)
  1. LEVAQUIN [Suspect]
     Indication: BRONCHITIS
     Route: 048
     Dates: start: 20080101, end: 20091001
  2. COUMADIN [Concomitant]
     Indication: THROMBOSIS
     Route: 065
  3. LEVAQUIN [Suspect]
     Indication: INFLUENZA
     Route: 048
     Dates: start: 20080101, end: 20091001
  4. LEVAQUIN [Suspect]
     Indication: UPPER RESPIRATORY TRACT INFECTION
     Route: 048
     Dates: start: 20080101, end: 20091001

REACTIONS (5)
  - TENDON RUPTURE [None]
  - PLANTAR FASCIITIS [None]
  - TRIGGER FINGER [None]
  - TENDON PAIN [None]
  - ROTATOR CUFF SYNDROME [None]
